FAERS Safety Report 6384397-1 (Version None)
Quarter: 2009Q4

REPORT INFORMATION
  Report Type: 
  Country: None (occurrence: None)
  Receive Date: 20091001
  Receipt Date: 20090923
  Transmission Date: 20100525
  Serious: Yes (Hospitalization)
  Sender: FDA-Public Use
  Company Number: US-JNJFOC-20090603566

PATIENT
  Sex: Female
  Weight: 103.42 kg

DRUGS (8)
  1. INFLIXIMAB [Suspect]
     Route: 042
  2. INFLIXIMAB [Suspect]
     Route: 042
  3. INFLIXIMAB [Suspect]
     Route: 042
  4. INFLIXIMAB [Suspect]
     Route: 042
  5. INFLIXIMAB [Suspect]
     Indication: PSORIASIS
     Route: 042
  6. HUMIRA [Concomitant]
     Indication: PSORIATIC ARTHROPATHY
     Route: 058
  7. HUMIRA [Concomitant]
     Indication: PSORIASIS
     Route: 058
  8. CYCLOSPORINE [Concomitant]
     Indication: PSORIASIS
     Dosage: MAXIMUM DOSE 400 MG/DAY

REACTIONS (12)
  - ARTERIAL THROMBOSIS [None]
  - DIZZINESS [None]
  - DRUG INEFFECTIVE [None]
  - HEADACHE [None]
  - HYPERTROPHY [None]
  - HYPOKALAEMIA [None]
  - NAUSEA [None]
  - NEUROPATHY PERIPHERAL [None]
  - NYSTAGMUS [None]
  - PSORIATIC ARTHROPATHY [None]
  - VERTIGO [None]
  - VOMITING [None]
